FAERS Safety Report 8923271 (Version 2)
Quarter: 2012Q4

REPORT INFORMATION
  Report Type: 
  Country: IT (occurrence: IT)
  Receive Date: 20121124
  Receipt Date: 20121127
  Transmission Date: 20130627
  Serious: Yes (Hospitalization)
  Sender: FDA-Public Use
  Company Number: PHHY2012IT106559

PATIENT
  Age: 78 Year
  Sex: Female

DRUGS (4)
  1. AMOXICILLIN\CLAVULANIC ACID [Suspect]
     Indication: ANTIBIOTIC THERAPY
     Dosage: 1 g, QD
     Route: 048
     Dates: start: 20120924, end: 20120925
  2. COUMADIN [Concomitant]
     Route: 048
  3. LOBIVON [Concomitant]
     Route: 048
  4. TRIATEC [Concomitant]

REACTIONS (1)
  - Syncope [Unknown]
